FAERS Safety Report 5711232-4 (Version None)
Quarter: 2008Q2

REPORT INFORMATION
  Report Type: 
  Country: None (occurrence: None)
  Receive Date: 20080421
  Receipt Date: 20080415
  Transmission Date: 20081010
  Serious: Yes (Other)
  Sender: FDA-Public Use
  Company Number: US-BAYER-200713732BCC

PATIENT
  Age: 49 Year
  Sex: Female
  Weight: 86 kg

DRUGS (2)
  1. ALEVE [Suspect]
     Indication: DRUG USE FOR UNKNOWN INDICATION
     Dosage: TOTAL DAILY DOSE: 220 MG  UNIT DOSE: 220 MG
     Route: 048
  2. BLOOD PRESSURE MEDICATION [Concomitant]

REACTIONS (4)
  - ANAPHYLACTIC REACTION [None]
  - FLUSHING [None]
  - PRURITUS [None]
  - SWOLLEN TONGUE [None]
